FAERS Safety Report 4499950-X (Version None)
Quarter: 2004Q4

REPORT INFORMATION
  Report Type: 
  Country: None (occurrence: None)
  Receive Date: 20041112
  Receipt Date: 20041012
  Transmission Date: 20050328
  Serious: Yes (Death, Hospitalization)
  Sender: FDA-Public Use
  Company Number: US-MERCK-0410USA01962

PATIENT
  Age: 46 Year
  Sex: Male

DRUGS (1)
  1. VIOXX [Suspect]
     Route: 048

REACTIONS (20)
  - ABDOMINAL PAIN [None]
  - BACK PAIN [None]
  - CARDIOMEGALY [None]
  - CARDIOVASCULAR DISORDER [None]
  - COLONIC PSEUDO-OBSTRUCTION [None]
  - HYPERTENSIVE HEART DISEASE [None]
  - HYPONATRAEMIA [None]
  - HYPOVOLAEMIA [None]
  - ILEUS [None]
  - INTERVERTEBRAL DISC DISORDER [None]
  - LEUKOCYTOSIS [None]
  - NAUSEA [None]
  - PAIN IN EXTREMITY [None]
  - POST PROCEDURAL COMPLICATION [None]
  - POST-TRAUMATIC STRESS DISORDER [None]
  - PULMONARY EMBOLISM [None]
  - RENAL FAILURE [None]
  - SMALL INTESTINAL OBSTRUCTION [None]
  - UPPER RESPIRATORY TRACT INFECTION [None]
  - VOMITING [None]
